FAERS Safety Report 11233734 (Version 1)
Quarter: 2015Q3

REPORT INFORMATION
  Report Type: Spontaneous
  Country: IT (occurrence: IT)
  Receive Date: 20150702
  Receipt Date: 20150702
  Transmission Date: 20151125
  Serious: Yes (Hospitalization)
  Sender: FDA-Public Use
  Company Number: IT-HOSPIRA-2918123

PATIENT
  Age: 67 Year
  Sex: Female
  Weight: 55 kg

DRUGS (1)
  1. CARBOPLATIN. [Suspect]
     Active Substance: CARBOPLATIN
     Indication: OVARIAN CANCER
     Route: 042
     Dates: start: 20150615

REACTIONS (6)
  - Nausea [Recovered/Resolved]
  - Pruritus [Recovered/Resolved]
  - Tachycardia [Recovered/Resolved]
  - Dyspnoea [Recovered/Resolved]
  - Hyperhidrosis [Recovered/Resolved]
  - Hypotension [Recovered/Resolved]

NARRATIVE: CASE EVENT DATE: 20150615
